FAERS Safety Report 6245644-X (Version None)
Quarter: 2009Q2

REPORT INFORMATION
  Report Type: 
  Country: None (occurrence: None)
  Receive Date: 20090625
  Receipt Date: 20090218
  Transmission Date: 20091009
  Serious: No
  Sender: FDA-Public Use
  Company Number: US-ASTRAZENECA-2009UW04684

PATIENT
  Age: 60 Year
  Sex: Male

DRUGS (6)
  1. ZOLADEX [Suspect]
     Indication: PROSTATE CANCER
     Route: 058
  2. FLUTAMIDE [Concomitant]
  3. ENALAPRIL [Concomitant]
  4. NORVASC [Concomitant]
  5. CARDURA [Concomitant]
  6. LORTAB [Concomitant]

REACTIONS (3)
  - BREAST ENLARGEMENT [None]
  - FEELING HOT [None]
  - LIBIDO DISORDER [None]
